FAERS Safety Report 24951842 (Version 2)
Quarter: 2025Q2

REPORT INFORMATION
  Report Type: Spontaneous
  Country: US (occurrence: US)
  Receive Date: 20250210
  Receipt Date: 20250401
  Transmission Date: 20250716
  Serious: Yes (Hospitalization)
  Sender: BRISTOL MYERS SQUIBB
  Company Number: US-BRISTOL-MYERS SQUIBB COMPANY-2025-015691

PATIENT
  Age: 74 Year
  Sex: Female

DRUGS (4)
  1. LENALIDOMIDE [Suspect]
     Active Substance: LENALIDOMIDE
     Indication: Plasma cell myeloma
     Dosage: TAKE 1 CAPSULE WHOLE BY MOUTH AT SAME TIME EVERY DAY , WITH OR WITHOUT FOOD
     Route: 048
  2. LENALIDOMIDE [Suspect]
     Active Substance: LENALIDOMIDE
     Dosage: TAKE 1 CAPSULE WHOLE BY MOUTH AT SAME TIME EVERY DAY , WITH OR WITHOUT FOOD
     Route: 048
  3. DARZALEX [Concomitant]
     Active Substance: DARATUMUMAB
  4. VELCADE [Concomitant]
     Active Substance: BORTEZOMIB

REACTIONS (11)
  - Norovirus infection [Unknown]
  - Dry skin [Unknown]
  - Dehydration [Unknown]
  - Headache [Unknown]
  - Poor quality sleep [Unknown]
  - Weight decreased [Unknown]
  - Abdominal discomfort [Not Recovered/Not Resolved]
  - Vomiting [Unknown]
  - Diarrhoea [Unknown]
  - Arthralgia [Unknown]
  - Decreased appetite [Unknown]
